FAERS Safety Report 17247089 (Version 1)
Quarter: 2020Q1

REPORT INFORMATION
  Report Type: Spontaneous
  Country: US (occurrence: US)
  Receive Date: 20200107
  Receipt Date: 20200107
  Transmission Date: 20200409
  Serious: No
  Sender: FDA-Public Use
  Company Number: None

PATIENT
  Age: 83 Year
  Sex: Male
  Weight: 54 kg

DRUGS (22)
  1. INLYTA [Suspect]
     Active Substance: AXITINIB
     Indication: RENAL CANCER
     Route: 048
     Dates: start: 20191014
  2. HAWTHORNE BERRY [Concomitant]
  3. MAGNESIUM OXIDE. [Concomitant]
     Active Substance: MAGNESIUM OXIDE
  4. VITAMIN D [Concomitant]
     Active Substance: VITAMIN D NOS
  5. BIOTIN 5000 [Concomitant]
  6. LYCOPENE [Concomitant]
     Active Substance: LYCOPENE
  7. VITAMIN B COMPLEX [Concomitant]
     Active Substance: CYANOCOBALAMIN\DEXPANTHENOL\NIACINAMIDE\PYRIDOXINE HYDROCHLORIDE\RIBOFLAVIN 5^-PHOSPHATE SODIUM\THIAMINE HYDROCHLORIDE\VITAMIN B COMPLEX
  8. VITAMIN A [Concomitant]
     Active Substance: VITAMIN A
  9. LUTEIN 20 [Concomitant]
  10. COPPER CAPS [Concomitant]
  11. BILBERRY [Concomitant]
     Active Substance: BILBERRY
  12. MANGANESE [Concomitant]
     Active Substance: MANGANESE CHLORIDE
  13. CRANBERRY JUICE POWDER [Concomitant]
  14. VITAMIN E [Concomitant]
     Active Substance: .ALPHA.-TOCOPHEROL
  15. VITAMIN B12 [Concomitant]
     Active Substance: CYANOCOBALAMIN
  16. BETA CAROTENE. [Concomitant]
     Active Substance: BETA CAROTENE
  17. VITAMIN C [Concomitant]
     Active Substance: ASCORBIC ACID
  18. CALCIUM CITRATE [Concomitant]
     Active Substance: CALCIUM CITRATE
  19. BORON [Concomitant]
     Active Substance: BORON
  20. MALIC B6 [Concomitant]
  21. ZINC SULFATE. [Concomitant]
     Active Substance: ZINC SULFATE
  22. SELENIUM [Concomitant]
     Active Substance: SELENIUM

REACTIONS (1)
  - Diarrhoea [None]

NARRATIVE: CASE EVENT DATE: 20200107
